FAERS Safety Report 22518617 (Version 1)
Quarter: 2023Q2

REPORT INFORMATION
  Report Type: Other
  Country: US (occurrence: None)
  Receive Date: 20230605
  Receipt Date: 20230605
  Transmission Date: 20230721
  Serious: No
  Sender: FDA-Public Use
  Company Number: US-ROCHE-1923012

PATIENT
  Age: 40 Year
  Sex: Male
  Weight: 103.51 kg

DRUGS (11)
  1. RITUXAN [Suspect]
     Active Substance: RITUXIMAB
     Indication: Relapsing multiple sclerosis
     Route: 041
     Dates: start: 20170407
  2. RITUXAN [Suspect]
     Active Substance: RITUXIMAB
     Route: 042
     Dates: start: 20161027
  3. OCREVUS [Suspect]
     Active Substance: OCRELIZUMAB
     Indication: Relapsing multiple sclerosis
     Route: 042
  4. COVID-19 VACCINE NOS [Suspect]
     Active Substance: COVID-19 VACCINE NOS
     Indication: Product used for unknown indication
     Route: 065
  5. BETASERON [Concomitant]
     Active Substance: INTERFERON BETA-1B
  6. COPAXONE [Concomitant]
     Active Substance: GLATIRAMER ACETATE
  7. AVONEX [Concomitant]
     Active Substance: INTERFERON BETA-1A
  8. TYSABRI [Concomitant]
     Active Substance: NATALIZUMAB
  9. TECFIDERA [Concomitant]
     Active Substance: DIMETHYL FUMARATE
  10. SOLU-MEDROL [Concomitant]
     Active Substance: METHYLPREDNISOLONE SODIUM SUCCINATE
  11. BENADRYL [Concomitant]
     Active Substance: DIPHENHYDRAMINE HYDROCHLORIDE

REACTIONS (11)
  - Off label use [Unknown]
  - Visual acuity reduced [Not Recovered/Not Resolved]
  - Urticaria [Recovered/Resolved]
  - Pruritus [Recovered/Resolved]
  - Dyspnoea [Recovered/Resolved]
  - Haematochezia [Unknown]
  - Confusional state [Unknown]
  - Nausea [Unknown]
  - Blood pressure decreased [Unknown]
  - COVID-19 [Unknown]
  - Dizziness [Unknown]

NARRATIVE: CASE EVENT DATE: 20161027
